FAERS Safety Report 16209392 (Version 7)
Quarter: 2019Q4

REPORT INFORMATION
  Report Type: Spontaneous
  Country: JP (occurrence: JP)
  Receive Date: 20190417
  Receipt Date: 20191007
  Transmission Date: 20200122
  Serious: Yes (Hospitalization, Other)
  Sender: FDA-Public Use
  Company Number: JP-OTSUKA-2019_011842

PATIENT
  Sex: Female

DRUGS (7)
  1. ABILIFY [Suspect]
     Active Substance: ARIPIPRAZOLE
     Dosage: 2 MG, UNK
     Route: 048
  2. ABILIFY [Suspect]
     Active Substance: ARIPIPRAZOLE
     Dosage: 24 MG, UNK
     Route: 048
  3. JZOLOFT [Concomitant]
     Active Substance: SERTRALINE HYDROCHLORIDE
     Indication: PRODUCT USED FOR UNKNOWN INDICATION
     Dosage: UNK
     Route: 065
  4. QUETIAPINE. [Concomitant]
     Active Substance: QUETIAPINE
     Indication: IRRITABILITY
     Dosage: UNK, ON AN AS-NEEDED BASIS
     Route: 048
  5. RIZE [Concomitant]
     Active Substance: CLOTIAZEPAM
     Indication: PRODUCT USED FOR UNKNOWN INDICATION
     Dosage: UNK
     Route: 065
  6. ABILIFY [Suspect]
     Active Substance: ARIPIPRAZOLE
     Indication: SCHIZOAFFECTIVE DISORDER
     Dosage: 18 MG, DIVIDED INTO 3 DOSES
     Route: 048
  7. ABILIFY [Suspect]
     Active Substance: ARIPIPRAZOLE
     Dosage: 1.5 MG, UNK
     Route: 048
     Dates: end: 2019

REACTIONS (46)
  - Withdrawal syndrome [Unknown]
  - Cardiac disorder [Unknown]
  - Thyroid disorder [Unknown]
  - Hypophagia [Unknown]
  - Blood prolactin increased [Recovered/Resolved]
  - Product use in unapproved indication [Unknown]
  - Hyperventilation [Unknown]
  - Bedridden [Unknown]
  - Altered state of consciousness [Unknown]
  - Glassy eyes [Unknown]
  - Lethargy [Unknown]
  - Syncope [Unknown]
  - Adverse reaction [Unknown]
  - Physical deconditioning [Unknown]
  - Fatigue [Unknown]
  - Treatment noncompliance [Unknown]
  - Coma [Recovered/Resolved]
  - Pallor [Unknown]
  - Throat irritation [Unknown]
  - Gait inability [Unknown]
  - Apathy [Unknown]
  - Musculoskeletal stiffness [Unknown]
  - Cyanosis [Unknown]
  - Dark circles under eyes [Unknown]
  - Feeling hot [Unknown]
  - Night sweats [Recovered/Resolved]
  - Thirst [Recovered/Resolved]
  - Alopecia [Unknown]
  - Loss of consciousness [Recovered/Resolved]
  - Ill-defined disorder [Unknown]
  - Chills [Unknown]
  - Asthenia [Unknown]
  - Somnolence [Unknown]
  - Peripheral coldness [Unknown]
  - Emotional distress [Unknown]
  - Dysgeusia [Unknown]
  - Muscular weakness [Unknown]
  - Irritability [Unknown]
  - Weight decreased [Unknown]
  - Suicidal ideation [Unknown]
  - Hair texture abnormal [Not Recovered/Not Resolved]
  - Hair colour changes [Unknown]
  - Movement disorder [Unknown]
  - Menstruation irregular [Recovered/Resolved]
  - Malaise [Unknown]
  - Insomnia [Unknown]

NARRATIVE: CASE EVENT DATE: 2019
